FAERS Safety Report 6857240-1 (Version None)
Quarter: 2010Q3

REPORT INFORMATION
  Report Type: 
  Country: None (occurrence: None)
  Receive Date: 20100719
  Receipt Date: 20100708
  Transmission Date: 20110219
  Serious: Yes (Other)
  Sender: FDA-Public Use
  Company Number: US-JNJFOC-20100703316

PATIENT
  Sex: Female
  Weight: 102.51 kg

DRUGS (18)
  1. SANDOZ FENTANYL TRANSDERMAL SYSTEM [Suspect]
     Indication: RHEUMATOID ARTHRITIS
     Route: 062
  2. SANDOZ FENTANYL TRANSDERMAL SYSTEM [Suspect]
     Route: 062
  3. RISPERDAL [Suspect]
     Indication: SLEEP DISORDER
     Route: 048
  4. RAMIPRIL [Concomitant]
     Indication: HYPERTENSION
     Route: 048
  5. LEXAPRO [Concomitant]
     Indication: NERVOUSNESS
     Route: 048
  6. PREDNISONE [Concomitant]
     Indication: ARTHRITIS
     Route: 048
  7. XANAX [Concomitant]
     Indication: ANXIETY
     Route: 048
  8. XANAX [Concomitant]
     Indication: NERVOUSNESS
     Route: 048
  9. XANAX [Concomitant]
     Indication: MUSCLE SPASMS
     Route: 048
  10. DEXADRIN [Concomitant]
     Indication: FATIGUE
     Route: 048
  11. PREMARIN [Concomitant]
     Indication: HYSTERECTOMY
     Route: 048
  12. FOLIC ACID [Concomitant]
     Indication: RHEUMATOID ARTHRITIS
     Route: 048
  13. VESICARE [Concomitant]
     Indication: URINE ABNORMALITY
     Route: 048
  14. HYDROCHLOROTHIAZIDE [Concomitant]
     Indication: FLUID RETENTION
     Route: 048
  15. HYDROCHLOROTHIAZIDE [Concomitant]
     Indication: HYPERTENSION
     Route: 048
  16. POTASSIUM CHLORIDE [Concomitant]
     Indication: MUSCLE SPASMS
     Route: 048
  17. METHOTREXATE [Concomitant]
     Indication: RHEUMATOID ARTHRITIS
     Route: 048
  18. XYREM [Concomitant]
     Indication: CATAPLEXY
     Route: 048

REACTIONS (16)
  - ABASIA [None]
  - ALOPECIA [None]
  - APPLICATION SITE ERYTHEMA [None]
  - APPLICATION SITE PRURITUS [None]
  - ASTHENIA [None]
  - CHRONIC OBSTRUCTIVE PULMONARY DISEASE [None]
  - DYSPNOEA [None]
  - EYELID PTOSIS [None]
  - FLUID RETENTION [None]
  - HYPOTHYROIDISM [None]
  - OFF LABEL USE [None]
  - PRODUCT QUALITY ISSUE [None]
  - RHEUMATOID ARTHRITIS [None]
  - WEIGHT DECREASED [None]
  - WEIGHT INCREASED [None]
  - WRONG TECHNIQUE IN DRUG USAGE PROCESS [None]
